FAERS Safety Report 6478849-3 (Version None)
Quarter: 2009Q4

REPORT INFORMATION
  Report Type: 
  Country: None (occurrence: None)
  Receive Date: 20091207
  Receipt Date: 20091202
  Transmission Date: 20100525
  Serious: Yes (Death)
  Sender: FDA-Public Use
  Company Number: CA-ABBOTT-09P-028-0611889-00

PATIENT
  Sex: Male
  Weight: 97.61 kg

DRUGS (14)
  1. HUMIRA [Suspect]
     Indication: CROHN'S DISEASE
     Route: 058
     Dates: start: 20090326, end: 20090826
  2. BIOCAL-D [Concomitant]
     Indication: DRUG USE FOR UNKNOWN INDICATION
  3. FLOMAX [Concomitant]
     Indication: DRUG USE FOR UNKNOWN INDICATION
  4. EFFEXOR [Concomitant]
     Indication: DRUG USE FOR UNKNOWN INDICATION
  5. SIMVASTATIN [Concomitant]
     Indication: DRUG USE FOR UNKNOWN INDICATION
  6. SPIROTONE [Concomitant]
     Indication: DRUG USE FOR UNKNOWN INDICATION
  7. ASAPHEN [Concomitant]
     Indication: DRUG USE FOR UNKNOWN INDICATION
  8. NOVO-SEMIDE [Concomitant]
     Indication: DRUG USE FOR UNKNOWN INDICATION
  9. PURINETHOL [Concomitant]
     Indication: DRUG USE FOR UNKNOWN INDICATION
  10. NOVO VENLAFAXINE [Concomitant]
     Indication: DRUG USE FOR UNKNOWN INDICATION
  11. NOVO-LORAZEM [Concomitant]
     Indication: DRUG USE FOR UNKNOWN INDICATION
  12. BIOCAL [Concomitant]
     Indication: DRUG USE FOR UNKNOWN INDICATION
  13. PANTOPRAZOLE [Concomitant]
     Indication: DRUG USE FOR UNKNOWN INDICATION
  14. CARVEDILOL [Concomitant]
     Indication: DRUG USE FOR UNKNOWN INDICATION

REACTIONS (1)
  - DEATH [None]
